FAERS Safety Report 5028073-6 (Version None)
Quarter: 2006Q2

REPORT INFORMATION
  Report Type: 
  Country: None (occurrence: None)
  Receive Date: 20060613
  Receipt Date: 20060531
  Transmission Date: 20061013
  Serious: Yes (Death, Hospitalization)
  Sender: FDA-Public Use
  Company Number: 200605IM000300

PATIENT
  Age: 71 Year
  Sex: Male
  Weight: 136.5327 kg

DRUGS (16)
  1. INTERFERON GAMMA-1B [Suspect]
     Indication: IDIOPATHIC PULMONARY FIBROSIS
     Dosage: 200 UG, TIW, SUBCUTANEOUS
     Route: 058
     Dates: end: 20060519
  2. ZOLOFT [Concomitant]
  3. RESTORIL [Concomitant]
  4. TYLENOL W/ CODEINE NO. 3 [Concomitant]
  5. LASIX [Concomitant]
  6. METOPROLOL TARTRATE [Concomitant]
  7. LIPITOR [Concomitant]
  8. COZAAR [Concomitant]
  9. MOBIC [Concomitant]
  10. K-DUR 10 [Concomitant]
  11. GLUCOTROL XL [Concomitant]
  12. CATAPRES-TTS-1 [Concomitant]
  13. MINITRAN [Concomitant]
  14. HUMULIN N [Concomitant]
  15. COUMADIN [Concomitant]
  16. TYLENOL (CAPLET) [Concomitant]

REACTIONS (2)
  - CONDITION AGGRAVATED [None]
  - IDIOPATHIC PULMONARY FIBROSIS [None]
